FAERS Safety Report 17050262 (Version 2)
Quarter: 2020Q1

REPORT INFORMATION
  Report Type: Spontaneous
  Country: US (occurrence: US)
  Receive Date: 20191119
  Receipt Date: 20200103
  Transmission Date: 20200409
  Serious: No
  Sender: FDA-Public Use
  Company Number: NVSC2019US040110

PATIENT
  Sex: Male

DRUGS (2)
  1. OMNITROPE [Suspect]
     Active Substance: SOMATROPIN
     Dosage: 0.8 MG, QD
     Route: 058
  2. OMNITROPE [Suspect]
     Active Substance: SOMATROPIN
     Indication: HYPOPITUITARISM
     Dosage: 0.6 MG, QD (DILUTE WITH 1.14 ML OF DILUENT) (12 UNITS ON INSULINE SYRINGE)
     Route: 058
     Dates: start: 201903

REACTIONS (4)
  - Product dose omission [Unknown]
  - Hair growth abnormal [Unknown]
  - Drug ineffective [Unknown]
  - Memory impairment [Unknown]
